FAERS Safety Report 21155028 (Version 1)
Quarter: 2022Q3

REPORT INFORMATION
  Report Type: Spontaneous
  Country: CA (occurrence: CA)
  Receive Date: 20220801
  Receipt Date: 20220801
  Transmission Date: 20221027
  Serious: Yes (Other)
  Sender: FDA-Public Use
  Company Number: CA-BAXTER-2022BAX015891

PATIENT
  Age: 87 Year
  Sex: Female

DRUGS (20)
  1. CYCLOPHOSPHAMIDE [Suspect]
     Active Substance: CYCLOPHOSPHAMIDE
     Indication: Plasma cell myeloma
     Dosage: 50.0 MILLIGRAM, DOSAGE FORM: NOT SPECIFIED
     Route: 065
  2. CYCLOPHOSPHAMIDE [Suspect]
     Active Substance: CYCLOPHOSPHAMIDE
     Dosage: 100.0 MILLIGRAM, 1 EVERY 2 DAYS
     Route: 065
  3. BORTEZOMIB [Suspect]
     Active Substance: BORTEZOMIB
     Indication: Product used for unknown indication
     Dosage: 1.3 MG/M2
     Route: 065
  4. DEXAMETHASONE [Suspect]
     Active Substance: DEXAMETHASONE
     Indication: Plasma cell myeloma
     Dosage: 12.0 MILLIGRAM, 1 EVERY 1 WEEKS
     Route: 065
  5. DEXAMETHASONE [Suspect]
     Active Substance: DEXAMETHASONE
     Dosage: 8.0 MILLIGRAM, 1 EVERY 1 WEEKS, DOSAGE FORM: NOT SPECIFIED
     Route: 065
  6. IXAZOMIB [Suspect]
     Active Substance: IXAZOMIB
     Indication: Plasma cell myeloma
     Dosage: 3.0 MILLIGRAM
     Route: 048
  7. IXAZOMIB [Suspect]
     Active Substance: IXAZOMIB
     Dosage: 2.3 MILLIGRAM
     Route: 048
  8. ACETAMINOPHEN [Concomitant]
     Active Substance: ACETAMINOPHEN
     Indication: Pain in extremity
     Dosage: DOSAGE FORM: NOT SPECIFIED
     Route: 065
  9. ACETAMINOPHEN [Concomitant]
     Active Substance: ACETAMINOPHEN
     Indication: Back pain
  10. ACYCLOVIR [Concomitant]
     Active Substance: ACYCLOVIR
     Indication: Product used for unknown indication
     Dosage: 400.0 MILLIGRAM, 1 EVERY 1 DAYS
     Route: 065
  11. ALLOPURINOL [Concomitant]
     Active Substance: ALLOPURINOL
     Indication: Product used for unknown indication
     Dosage: 100.0 MILLIGRAM, 1 EVERY 1 DAYS
     Route: 065
  12. EPOETIN ALFA [Concomitant]
     Active Substance: ERYTHROPOIETIN
     Indication: Product used for unknown indication
     Dosage: 1 EVERY 1 WEEKS
     Route: 065
  13. ERGOCALCIFEROL [Concomitant]
     Active Substance: ERGOCALCIFEROL
     Indication: Product used for unknown indication
     Dosage: 1 EVERY 1 DAYS
     Route: 065
  14. FERROUS FUMARATE [Concomitant]
     Active Substance: FERROUS FUMARATE
     Indication: Product used for unknown indication
     Dosage: 300.0 MILLIGRAM, 1 EVERY 1 DAYS, DOSAGE FORM: NOT SPECIFIED
     Route: 065
  15. HYDROMORPHONE [Concomitant]
     Active Substance: HYDROMORPHONE
     Indication: Product used for unknown indication
     Dosage: 1.0 MILLIGRAM, DOSAGE FORM: NOT SPECIFIED
     Route: 065
  16. LOPERAMIDE [Concomitant]
     Active Substance: LOPERAMIDE
     Indication: Product used for unknown indication
     Dosage: 2.0 MILLIGRAM
     Route: 065
  17. OLANZAPINE [Concomitant]
     Active Substance: OLANZAPINE
     Indication: Product used for unknown indication
     Dosage: 5.0 MILLIGRAM, DOSAGE FORM: NOT SPECIFIED
     Route: 065
  18. ONDANSETRON [Concomitant]
     Active Substance: ONDANSETRON
     Indication: Premedication
     Dosage: 8.0 MILLIGRAM, 1 EVERY 1 WEEKS, DOSAGE FORM: NOT SPECIFIED
  19. PANTOPRAZOLE [Concomitant]
     Active Substance: PANTOPRAZOLE
     Indication: Product used for unknown indication
     Dosage: 40.0 MILLIGRAM 1 EVERY 1 DAYS, DOSAGE FORM: NOT SPECIFIED
     Route: 065
  20. SODIUM BICARBONATE [Concomitant]
     Active Substance: SODIUM BICARBONATE
     Indication: Product used for unknown indication
     Dosage: 1500.0 MILLIGRAM, 3 EVERY 1 DAYS, DOSAGE FORM: NOT SPECIFIED
     Route: 048

REACTIONS (11)
  - Blood potassium increased [Not Recovered/Not Resolved]
  - Contusion [Not Recovered/Not Resolved]
  - Hypoaesthesia [Not Recovered/Not Resolved]
  - Insomnia [Not Recovered/Not Resolved]
  - Off label use [Not Recovered/Not Resolved]
  - Renal injury [Not Recovered/Not Resolved]
  - Throat tightness [Not Recovered/Not Resolved]
  - Diarrhoea [Not Recovered/Not Resolved]
  - Fatigue [Not Recovered/Not Resolved]
  - Malaise [Not Recovered/Not Resolved]
  - Taste disorder [Not Recovered/Not Resolved]
